FAERS Safety Report 7945405-7 (Version None)
Quarter: 2011Q4

REPORT INFORMATION
  Report Type: 
  Country: None (occurrence: None)
  Receive Date: 20111129
  Receipt Date: 20110929
  Transmission Date: 20120403
  Serious: No
  Sender: FDA-Public Use
  Company Number: US-GLAXOSMITHKLINE-A0946439A

PATIENT
  Sex: Male

DRUGS (10)
  1. METFORMIN HCL [Concomitant]
  2. PLAVIX [Concomitant]
  3. BUPROPION HYDROCHLORIDE [Suspect]
     Indication: EX-TOBACCO USER
     Dosage: 150MG PER DAY
     Route: 048
     Dates: start: 20110928
  4. ASPIRIN [Concomitant]
  5. ASCORBIC ACID [Concomitant]
  6. VITAMIN D [Concomitant]
  7. XANAX [Concomitant]
  8. FISH OIL [Concomitant]
  9. LISINOPRIL [Concomitant]
  10. ACYCLOVIR [Concomitant]

REACTIONS (9)
  - HYPOAESTHESIA [None]
  - INSOMNIA [None]
  - ADVERSE REACTION [None]
  - ABNORMAL DREAMS [None]
  - HEADACHE [None]
  - SOCIAL AVOIDANT BEHAVIOUR [None]
  - FEELING OF RELAXATION [None]
  - MOOD ALTERED [None]
  - ENERGY INCREASED [None]
